FAERS Safety Report 6055304-6 (Version None)
Quarter: 2009Q1

REPORT INFORMATION
  Report Type: 
  Country: None (occurrence: None)
  Receive Date: 20090128
  Receipt Date: 20090128
  Transmission Date: 20090719
  Serious: Yes (Disabling, Other)
  Sender: FDA-Public Use
  Company Number: US-PFIZER INC-2008151458

PATIENT
  Sex: Female

DRUGS (2)
  1. LYRICA [Suspect]
  2. ACCUPRIL [Suspect]

REACTIONS (3)
  - ARTHRITIS [None]
  - GOUT [None]
  - MOBILITY DECREASED [None]
